FAERS Safety Report 8206103-8 (Version None)
Quarter: 2012Q1

REPORT INFORMATION
  Report Type: 
  Country: None (occurrence: None)
  Receive Date: 20120313
  Receipt Date: 20120306
  Transmission Date: 20120608
  Serious: Yes (Other)
  Sender: FDA-Public Use
  Company Number: PHHY2012BR020466

PATIENT
  Sex: Female

DRUGS (2)
  1. DIOVAN [Suspect]
     Dosage: 2 TABLETS DAILY
  2. AMLODIPINE [Suspect]
     Dosage: 1 TABLET DAILY

REACTIONS (2)
  - ASTHENIA [None]
  - ISCHAEMIA [None]
